FAERS Safety Report 16540451 (Version 1)
Quarter: 2019Q3

REPORT INFORMATION
  Report Type: Spontaneous
  Country: US (occurrence: US)
  Receive Date: 20190708
  Receipt Date: 20190708
  Transmission Date: 20191004
  Serious: Yes (Hospitalization)
  Sender: FDA-Public Use
  Company Number: US-CELGENEUS-USA-20190610577

PATIENT
  Sex: Male

DRUGS (1)
  1. OTEZLA [Suspect]
     Active Substance: APREMILAST
     Indication: SKIN FIBROSIS
     Dosage: 60 MILLIGRAM
     Route: 048

REACTIONS (2)
  - Rib fracture [Recovered/Resolved with Sequelae]
  - Fall [Recovered/Resolved with Sequelae]
